FAERS Safety Report 5092273-X (Version None)
Quarter: 2006Q3

REPORT INFORMATION
  Report Type: 
  Country: None (occurrence: None)
  Receive Date: 20060825
  Receipt Date: 20060810
  Transmission Date: 20061208
  Serious: Yes (Hospitalization)
  Sender: FDA-Public Use
  Company Number: US200608003766

PATIENT
  Age: 77 Year
  Sex: Female

DRUGS (4)
  1. HUMALOG [Suspect]
     Indication: BLOOD GLUCOSE INCREASED
     Dosage: 15 U, AS NEEDED, UP TO TEN TIMES A DAY
     Dates: start: 20050101
  2. HUMULIN 70/30 [Suspect]
     Indication: BLOOD GLUCOSE INCREASED
     Dosage: 20 U, 3/D
     Dates: start: 20060701
  3. AVANDIA [Concomitant]
  4. NORVASC [Concomitant]

REACTIONS (4)
  - BLOOD GLUCOSE INCREASED [None]
  - CARDIAC FAILURE CONGESTIVE [None]
  - DRUG INEFFECTIVE [None]
  - SWELLING [None]
